FAERS Safety Report 6576341-9 (Version None)
Quarter: 2010Q2

REPORT INFORMATION
  Report Type: 
  Country: None (occurrence: None)
  Receive Date: 20100210
  Receipt Date: 20100131
  Transmission Date: 20101027
  Serious: Yes (Hospitalization)
  Sender: FDA-Public Use
  Company Number: US-JNJFOC-20100201506

PATIENT
  Age: 4 Year
  Sex: Male
  Weight: 21.32 kg

DRUGS (4)
  1. JUNIOR STRENGTH MOTRIN [Suspect]
     Route: 048
  2. JUNIOR STRENGTH MOTRIN [Suspect]
     Indication: PYREXIA
     Dosage: ALTERNATING W/ TYLENOL
     Route: 048
  3. CHILDREN'S TYLENOL SUSPENSION [Suspect]
     Route: 048
  4. CHILDREN'S TYLENOL SUSPENSION [Suspect]
     Indication: PYREXIA
     Dosage: EVERY 4-6 HOURS ALTERNATING W/ MOTRIN
     Route: 048

REACTIONS (3)
  - PRODUCT QUALITY ISSUE [None]
  - PYREXIA [None]
  - VOMITING [None]
